FAERS Safety Report 5238601-3 (Version None)
Quarter: 2007Q1

REPORT INFORMATION
  Report Type: 
  Country: None (occurrence: None)
  Receive Date: 20070215
  Receipt Date: 20070209
  Transmission Date: 20070707
  Serious: Yes (Hospitalization)
  Sender: FDA-Public Use
  Company Number: IT-SANOFI-SYNTHELABO-A06200700055

PATIENT
  Sex: Female

DRUGS (15)
  1. PLAQUENIL [Suspect]
     Indication: RHEUMATOID ARTHRITIS
     Route: 048
     Dates: start: 20061121, end: 20061220
  2. GLUCOPHAGE [Concomitant]
     Indication: DRUG USE FOR UNKNOWN INDICATION
     Dosage: UNK
     Route: 048
  3. GLUCOPHAGE [Concomitant]
     Dosage: UNK
     Route: 048
  4. GLUCOPHAGE [Concomitant]
     Dosage: UNK
     Route: 048
  5. DELTACORTENE [Concomitant]
     Indication: DRUG USE FOR UNKNOWN INDICATION
     Route: 048
  6. DELTACORTENE [Concomitant]
     Route: 048
  7. DELTACORTENE [Concomitant]
     Route: 048
  8. TRIATEC HCT [Concomitant]
     Indication: DRUG USE FOR UNKNOWN INDICATION
     Dosage: UNK
     Route: 048
  9. TRIATEC HCT [Concomitant]
     Dosage: UNK
     Route: 048
  10. TRIATEC HCT [Concomitant]
     Dosage: UNK
     Route: 048
  11. PEPTAZOL [Concomitant]
     Indication: DRUG USE FOR UNKNOWN INDICATION
     Dosage: UNK
     Route: 048
  12. ASPIRIN [Concomitant]
     Indication: DRUG USE FOR UNKNOWN INDICATION
     Dosage: UNK
     Route: 048
  13. EUTIROX [Concomitant]
     Indication: DRUG USE FOR UNKNOWN INDICATION
     Dosage: UNK
     Route: 048
  14. EUTIROX [Concomitant]
     Dosage: UNK
     Route: 048
  15. EUTIROX [Concomitant]
     Dosage: UNK
     Route: 048

REACTIONS (1)
  - ERYTHEMA MULTIFORME [None]
